FAERS Safety Report 4809268-0 (Version None)
Quarter: 2005Q4

REPORT INFORMATION
  Report Type: 
  Country: None (occurrence: None)
  Receive Date: 20051021
  Receipt Date: 20051013
  Transmission Date: 20060501
  Serious: Yes (Other)
  Sender: FDA-Public Use
  Company Number: GXKR2005BR01817

PATIENT
  Age: 39 Year
  Sex: Female
  Weight: 82 kg

DRUGS (3)
  1. ALPRAZOLAM [Suspect]
     Indication: DEPRESSION
     Dosage: 2 MG, TID, ORAL
     Route: 048
     Dates: start: 20050201
  2. CYMBALTA [Concomitant]
  3. ROHYPNOL (FLUNITRAZEPAM) [Concomitant]

REACTIONS (9)
  - ASTHENIA [None]
  - DIARRHOEA [None]
  - DRY MOUTH [None]
  - HYPERHIDROSIS [None]
  - MUSCLE RIGIDITY [None]
  - NAUSEA [None]
  - PALPITATIONS [None]
  - TREMOR [None]
  - WEIGHT INCREASED [None]
